FAERS Safety Report 14333034 (Version 1)
Quarter: 2017Q4

REPORT INFORMATION
  Report Type: Spontaneous
  Country: JP (occurrence: JP)
  Receive Date: 20171228
  Receipt Date: 20171228
  Transmission Date: 20180321
  Serious: Yes (Other)
  Sender: FDA-Public Use
  Company Number: JP-SHIRE-2014BAX017436

PATIENT
  Age: 5 Year
  Sex: Male

DRUGS (3)
  1. FEIBA NF [Suspect]
     Active Substance: ANTI-INHIBITOR COAGULANT COMPLEX
     Indication: CEREBRAL HAEMATOMA
     Dosage: UNK UNK, 1X/DAY:QD
     Route: 065
  2. FEIBA NF [Suspect]
     Active Substance: ANTI-INHIBITOR COAGULANT COMPLEX
     Dosage: 60IU/KG
     Route: 065
  3. FEIBA NF [Suspect]
     Active Substance: ANTI-INHIBITOR COAGULANT COMPLEX
     Dosage: 2X A DAY
     Route: 065

REACTIONS (3)
  - Haemorrhage [Recovering/Resolving]
  - Muscle haemorrhage [Recovering/Resolving]
  - Drug ineffective [Recovering/Resolving]
